FAERS Safety Report 10388806 (Version 2)
Quarter: 2014Q4

REPORT INFORMATION
  Report Type: Spontaneous
  Country: BE (occurrence: BE)
  Receive Date: 20140816
  Receipt Date: 20141101
  Transmission Date: 20150528
  Serious: Yes (Other)
  Sender: FDA-Public Use
  Company Number: BE-ABBVIE-14P-013-1270980-00

PATIENT
  Age: 79 Year
  Sex: Female
  Weight: 45 kg

DRUGS (1)
  1. HUMIRA [Suspect]
     Active Substance: ADALIMUMAB
     Indication: CROHN^S DISEASE
     Route: 065
     Dates: start: 201009, end: 201408

REACTIONS (3)
  - Fatigue [Unknown]
  - Weight decreased [Unknown]
  - Squamous cell carcinoma of lung [Unknown]

NARRATIVE: CASE EVENT DATE: 201407
